FAERS Safety Report 18618071 (Version 1)
Quarter: 2020Q4

REPORT INFORMATION
  Report Type: Spontaneous
  Country: CN (occurrence: CN)
  Receive Date: 20201215
  Receipt Date: 20201215
  Transmission Date: 20210114
  Serious: Yes (Hospitalization)
  Sender: FDA-Public Use
  Company Number: CN-GLAXOSMITHKLINE-CN2020APC242379

PATIENT
  Age: 33 Year
  Sex: Female
  Weight: 50 kg

DRUGS (1)
  1. BACTROBAN [Suspect]
     Active Substance: MUPIROCIN\MUPIROCIN CALCIUM
     Indication: SKIN INFECTION
     Dosage: 1 G, TID
     Route: 061
     Dates: start: 20201126, end: 20201126

REACTIONS (4)
  - Application site pruritus [Recovering/Resolving]
  - Erythema [Recovering/Resolving]
  - Dermatitis contact [Recovering/Resolving]
  - Concomitant disease progression [Unknown]

NARRATIVE: CASE EVENT DATE: 20201126
